FAERS Safety Report 9856789 (Version 2)
Quarter: 2014Q1

REPORT INFORMATION
  Report Type: Spontaneous
  Country: US (occurrence: US)
  Receive Date: 20140130
  Receipt Date: 20140317
  Transmission Date: 20141002
  Serious: Yes (Hospitalization, Other)
  Sender: FDA-Public Use
  Company Number: US-MERCK-1401USA013872

PATIENT
  Sex: Female

DRUGS (3)
  1. JANUVIA [Suspect]
     Indication: TYPE 2 DIABETES MELLITUS
     Dosage: 100 MG, QD, HAD BEEN TAKING FOR OVER 1 YEAR,
     Route: 048
  2. LISINOPRIL [Suspect]
  3. INSULIN [Concomitant]

REACTIONS (1)
  - Pancreatitis [Not Recovered/Not Resolved]
